FAERS Safety Report 15059815 (Version 1)
Quarter: 2018Q2

REPORT INFORMATION
  Report Type: Spontaneous
  Country: US (occurrence: US)
  Receive Date: 20180625
  Receipt Date: 20180625
  Transmission Date: 20180711
  Serious: No
  Sender: FDA-Public Use
  Company Number: US-SA-2018SA167373

PATIENT
  Sex: Male

DRUGS (2)
  1. PRALUENT [Suspect]
     Active Substance: ALIROCUMAB
     Indication: MYALGIA
     Dosage: UNK UNK, QOW
     Route: 051
     Dates: start: 20180306
  2. PRALUENT [Suspect]
     Active Substance: ALIROCUMAB
     Indication: ARTHRALGIA

REACTIONS (1)
  - Condition aggravated [Unknown]
